FAERS Safety Report 6552679-6 (Version None)
Quarter: 2010Q1

REPORT INFORMATION
  Report Type: 
  Country: None (occurrence: None)
  Receive Date: 20100126
  Receipt Date: 20100119
  Transmission Date: 20100710
  Serious: Yes (Hospitalization)
  Sender: FDA-Public Use
  Company Number: B0627160A

PATIENT
  Sex: Female

DRUGS (3)
  1. COMBIVIR [Suspect]
     Dosage: 1UNIT TWICE PER DAY
     Route: 048
     Dates: start: 20091027
  2. PANENZA [Suspect]
     Indication: PROPHYLAXIS
     Route: 030
     Dates: start: 20091124, end: 20091124
  3. KALETRA [Suspect]
     Dosage: 2UNIT TWICE PER DAY
     Route: 048
     Dates: start: 20091027

REACTIONS (4)
  - ABORTION SPONTANEOUS [None]
  - AMNIORRHOEA [None]
  - DRUG EXPOSURE DURING PREGNANCY [None]
  - UTERINE CONTRACTIONS DURING PREGNANCY [None]
